FAERS Safety Report 4829563-9 (Version None)
Quarter: 2005Q4

REPORT INFORMATION
  Report Type: 
  Country: None (occurrence: None)
  Receive Date: 20051116
  Receipt Date: 20051108
  Transmission Date: 20060501
  Serious: Yes (Hospitalization)
  Sender: FDA-Public Use
  Company Number: US-BRISTOL-MYERS SQUIBB COMPANY-13172614

PATIENT
  Age: 38 Year
  Sex: Female

DRUGS (6)
  1. ABILIFY [Suspect]
     Indication: BIPOLAR I DISORDER
     Route: 048
     Dates: start: 20050413, end: 20050418
  2. ATIVAN [Concomitant]
     Dates: start: 20050413
  3. ESKALITH CR [Concomitant]
     Dates: start: 20050104
  4. FLEXERIL [Concomitant]
     Dates: start: 20040701
  5. SEROQUEL [Concomitant]
     Dates: start: 20030701
  6. TRILEPTAL [Concomitant]
     Dates: start: 20050418

REACTIONS (2)
  - AKATHISIA [None]
  - BIPOLAR DISORDER [None]
